FAERS Safety Report 6218082-3 (Version None)
Quarter: 2009Q2

REPORT INFORMATION
  Report Type: 
  Country: None (occurrence: None)
  Receive Date: 20090608
  Receipt Date: 20090525
  Transmission Date: 20091009
  Serious: Yes (Hospitalization)
  Sender: FDA-Public Use
  Company Number: NL-PFIZER INC-2009217609

PATIENT
  Age: 69 Year

DRUGS (13)
  1. AMLODIPINE BESILATE [Suspect]
     Dosage: UNK
     Route: 065
  2. BLINDED THERAPY [Suspect]
     Indication: CARDIOVASCULAR DISORDER
     Dosage: CODE NOT BROKEN
     Route: 048
     Dates: start: 20080410
  3. LANTUS [Concomitant]
     Dosage: UNK
  4. NOVORAPID [Concomitant]
     Dosage: UNK
  5. METOPROLOL [Concomitant]
  6. EZETROL [Concomitant]
     Dosage: UNK
  7. ASCAL [Concomitant]
     Dosage: UNK
  8. COZAAR [Concomitant]
     Dosage: UNK
  9. CRESTOR [Concomitant]
     Dosage: UNK
  10. METFORMIN [Concomitant]
     Dosage: UNK
  11. ALLOPURINOL [Concomitant]
     Dosage: UNK
  12. METAMUCIL-2 [Concomitant]
     Dosage: UNK
  13. FERROFUMARAT [Concomitant]
     Dosage: UNK

REACTIONS (2)
  - ANAEMIA [None]
  - OEDEMA PERIPHERAL [None]
